FAERS Safety Report 10393350 (Version 1)
Quarter: 2014Q3

REPORT INFORMATION
  Report Type: Report from Study
  Country: AU (occurrence: AU)
  Receive Date: 20140819
  Receipt Date: 20140819
  Transmission Date: 20150326
  Serious: Yes (Other)
  Sender: FDA-Public Use
  Company Number: PHHY2014AU097654

PATIENT
  Age: 31 Year
  Sex: Female

DRUGS (82)
  1. TARGIN [Concomitant]
     Active Substance: NALOXONE HYDROCHLORIDE\OXYCODONE HYDROCHLORIDE
     Indication: ABDOMINAL PAIN UPPER
     Dosage: 1 DF, UNK
     Route: 048
  2. PARACETAMOL [Concomitant]
     Active Substance: ACETAMINOPHEN
     Indication: ABDOMINAL PAIN
     Dosage: 1 G, UNK
     Route: 048
     Dates: start: 20131219, end: 20131223
  3. METOCLOPRAMIDE. [Concomitant]
     Active Substance: METOCLOPRAMIDE
     Indication: PREMEDICATION
     Dosage: 10 MG, UNK
     Route: 048
     Dates: start: 20131213, end: 20140106
  4. METOCLOPRAMIDE. [Concomitant]
     Active Substance: METOCLOPRAMIDE
     Indication: PROPHYLAXIS OF NAUSEA AND VOMITING
     Dosage: 10 MG, UNK
     Route: 042
     Dates: start: 20140306, end: 20140306
  5. FENTANYL. [Concomitant]
     Active Substance: FENTANYL
     Dosage: 4000 UG, UNK
     Route: 042
     Dates: start: 20140303, end: 20140308
  6. CEPHAZOLIN [Concomitant]
     Active Substance: CEFAZOLIN
     Indication: ABDOMINAL PAIN UPPER
     Dosage: 1000 MG, UNK
     Route: 042
     Dates: start: 20140303, end: 20140303
  7. ONDANSETRON [Concomitant]
     Active Substance: ONDANSETRON
     Indication: ABDOMINAL PAIN UPPER
     Dosage: 4 MG, UNK
     Route: 042
     Dates: start: 20140303, end: 20140303
  8. ENDONE [Concomitant]
     Active Substance: OXYCODONE HYDROCHLORIDE
     Indication: ABDOMINAL PAIN UPPER
     Dosage: 25 MG, UNK
     Route: 048
     Dates: start: 20140224, end: 20140224
  9. MAXOLON [Concomitant]
     Active Substance: METOCLOPRAMIDE HYDROCHLORIDE
     Indication: ABDOMINAL PAIN UPPER
     Dosage: 10 MG, UNK
     Route: 048
     Dates: start: 20140224, end: 20140227
  10. HYDROCORTISONE. [Concomitant]
     Active Substance: HYDROCORTISONE
     Indication: PRURITUS
     Dosage: 1 %, UNK
     Route: 061
     Dates: start: 20131214
  11. TARGIN [Concomitant]
     Active Substance: NALOXONE HYDROCHLORIDE\OXYCODONE HYDROCHLORIDE
     Dosage: 1 DF, UNK
     Route: 048
  12. DEXAMETHASONE. [Concomitant]
     Active Substance: DEXAMETHASONE
     Indication: NAUSEA
     Dosage: 8 MG, UNK
     Route: 048
     Dates: start: 20131213, end: 20140105
  13. PARACETAMOL [Concomitant]
     Active Substance: ACETAMINOPHEN
     Indication: PREMEDICATION
     Dosage: 1000 MG, UNK
     Route: 048
     Dates: start: 20131212, end: 20140129
  14. PARACETAMOL [Concomitant]
     Active Substance: ACETAMINOPHEN
     Dosage: 1 G, UNK
     Route: 048
     Dates: start: 20140319, end: 20140319
  15. ATROPINE [Concomitant]
     Active Substance: ATROPINE
     Indication: PREMEDICATION
     Dosage: 0.4 MG, UNK
     Route: 058
     Dates: start: 20131212, end: 20140103
  16. FENTANYL. [Concomitant]
     Active Substance: FENTANYL
     Dosage: 200 UG, UNK
     Route: 042
     Dates: start: 20140303, end: 20140303
  17. KETAMINE [Concomitant]
     Active Substance: KETAMINE
     Dosage: 192 MG, UNK
     Route: 042
     Dates: start: 20140305, end: 20140306
  18. ONDANSETRON [Concomitant]
     Active Substance: ONDANSETRON
     Dosage: 8 MG, UNK
     Route: 042
     Dates: start: 20140304, end: 20140306
  19. ALBUMEX [Concomitant]
     Indication: HEPATECTOMY
     Dosage: 250 ML, UNK
     Route: 042
     Dates: start: 20140303, end: 20140303
  20. NORMAL SALINE [Concomitant]
     Active Substance: SODIUM CHLORIDE
     Indication: HEPATECTOMY
     Dosage: 2000 ML, UNK
     Route: 042
     Dates: start: 20140303, end: 20140303
  21. LOPERAMIDE [Concomitant]
     Active Substance: LOPERAMIDE
     Indication: DIARRHOEA
     Dosage: 2 MG, UNK
     Route: 048
     Dates: start: 20131223, end: 20131223
  22. 5-FLUOROURACIL [Suspect]
     Active Substance: FLUOROURACIL
     Indication: COLORECTAL CANCER METASTATIC
     Dosage: 4872 MG, ONCE EVERY 2 WEEKS
     Route: 042
     Dates: start: 20131212
  23. TARGIN [Concomitant]
     Active Substance: NALOXONE HYDROCHLORIDE\OXYCODONE HYDROCHLORIDE
     Dosage: 1 DF, UNK
     Dates: start: 20140306, end: 20140309
  24. PALONOSETRON [Concomitant]
     Active Substance: PALONOSETRON
     Indication: PREMEDICATION
     Dosage: 250 UG, UNK
     Route: 042
     Dates: start: 20131212, end: 20140103
  25. PARACETAMOL [Concomitant]
     Active Substance: ACETAMINOPHEN
     Indication: HEPATECTOMY
     Dosage: 1000 MG, UNK
     Route: 042
     Dates: start: 20140305, end: 20140305
  26. METARAMINOL [Concomitant]
     Active Substance: METARAMINOL
     Indication: HEPATECTOMY
     Route: 042
     Dates: start: 20140303, end: 20140303
  27. NORMAL SALINE [Concomitant]
     Active Substance: SODIUM CHLORIDE
     Indication: ABDOMINAL PAIN UPPER
     Dosage: 1000 ML, UNK
     Route: 042
     Dates: start: 20140224, end: 20140228
  28. CEFAZOLIN [Concomitant]
     Active Substance: CEFAZOLIN
     Indication: DEVICE RELATED INFECTION
     Dosage: 1 G, UNK
     Route: 042
     Dates: start: 20140319, end: 20140321
  29. LORATADINE. [Concomitant]
     Active Substance: LORATADINE
     Indication: PREMEDICATION
     Dosage: 10 MG, UNK
     Route: 048
     Dates: start: 20131212, end: 20140103
  30. APREPITANT [Concomitant]
     Active Substance: APREPITANT
     Indication: PROPHYLAXIS OF NAUSEA AND VOMITING
     Dosage: 80 MG, UNK
     Route: 048
     Dates: start: 20131213, end: 20131214
  31. METOCLOPRAMIDE. [Concomitant]
     Active Substance: METOCLOPRAMIDE
     Indication: HEPATECTOMY
  32. FENTANYL. [Concomitant]
     Active Substance: FENTANYL
     Indication: ABDOMINAL PAIN UPPER
     Dosage: 150 UG, UNK
     Route: 058
     Dates: start: 20140223, end: 20140224
  33. FENTANYL. [Concomitant]
     Active Substance: FENTANYL
     Dosage: 2000 UG, UNK
     Route: 042
     Dates: start: 20140224, end: 20140302
  34. KETAMINE [Concomitant]
     Active Substance: KETAMINE
     Indication: HEPATECTOMY
     Dosage: 4 MG, UNK
     Route: 042
     Dates: start: 20140303, end: 20140303
  35. TRAMADOL [Concomitant]
     Active Substance: TRAMADOL
     Indication: HEPATECTOMY
     Dosage: 100 MG, UNK
     Route: 048
     Dates: start: 20140308, end: 20140308
  36. PANTOPRAZOLE [Concomitant]
     Active Substance: PANTOPRAZOLE SODIUM
     Indication: ABDOMINAL PAIN UPPER
     Dosage: 40 MG, UNK
     Route: 048
     Dates: start: 20140301, end: 20140306
  37. AUGMENTIN DUO [Concomitant]
     Active Substance: AMOXICILLIN\CLAVULANATE POTASSIUM
     Indication: DEVICE RELATED INFECTION
     Dosage: 1 DF, UNK
     Route: 048
     Dates: start: 20140317, end: 20140319
  38. DEXAMETHASONE. [Concomitant]
     Active Substance: DEXAMETHASONE
     Indication: PREMEDICATION
     Dosage: 8 MG, UNK
     Route: 042
     Dates: start: 20131212, end: 20140103
  39. DEXAMETHASONE. [Concomitant]
     Active Substance: DEXAMETHASONE
     Dosage: 8 MG, UNK
     Route: 042
     Dates: start: 20140303, end: 20140303
  40. KETAMINE [Concomitant]
     Active Substance: KETAMINE
     Dosage: 96 MG, UNK
     Route: 042
     Dates: start: 20140303, end: 20140305
  41. CISATRACURIUM [Concomitant]
     Active Substance: CISATRACURIUM
     Indication: ABDOMINAL PAIN UPPER
     Dosage: 30 MG, UNK
     Route: 042
     Dates: start: 20140303, end: 20140303
  42. METRONIDAZOLE. [Concomitant]
     Active Substance: METRONIDAZOLE
     Indication: ABDOMINAL PAIN UPPER
     Dosage: 500 MG, UNK
     Route: 042
     Dates: start: 20140303, end: 20140303
  43. NORMAL SALINE [Concomitant]
     Active Substance: SODIUM CHLORIDE
     Dosage: 1000 ML, UNK
     Route: 042
     Dates: start: 20140305, end: 20140307
  44. COLOXYL SENNA [Concomitant]
     Indication: ABDOMINAL PAIN
     Dosage: 2 DF, UNK
     Route: 048
     Dates: start: 20140319, end: 20140320
  45. NILSTAT [Concomitant]
     Active Substance: NYSTATIN
     Indication: MUCOSAL INFLAMMATION
     Dosage: 1 DF, UNK
     Dates: start: 20140115
  46. IBUPROFEN. [Concomitant]
     Active Substance: IBUPROFEN
     Indication: ABDOMINAL PAIN
     Dosage: 400 MG, UNK
     Route: 048
     Dates: start: 20131217, end: 20131223
  47. IRINOTECAN [Suspect]
     Active Substance: IRINOTECAN
     Indication: COLORECTAL CANCER METASTATIC
     Dosage: 312 MG, UNK
     Route: 042
     Dates: start: 20131212
  48. CALCIUM FOLINATE [Suspect]
     Active Substance: LEUCOVORIN CALCIUM
     Indication: COLORECTAL CANCER METASTATIC
     Dosage: 348 MG, ONCE EVERY 2 WEEKS
     Route: 042
     Dates: start: 20131212
  49. TARGIN [Concomitant]
     Active Substance: NALOXONE HYDROCHLORIDE\OXYCODONE HYDROCHLORIDE
     Dosage: 1 DF, UNK
     Route: 048
     Dates: start: 20140224, end: 20140226
  50. TARGIN [Concomitant]
     Active Substance: NALOXONE HYDROCHLORIDE\OXYCODONE HYDROCHLORIDE
     Dosage: 1 DF, UNK
     Dates: start: 20140301, end: 20140301
  51. TARGIN [Concomitant]
     Active Substance: NALOXONE HYDROCHLORIDE\OXYCODONE HYDROCHLORIDE
     Dosage: 1 DF, UNK
     Route: 048
  52. DEXAMETHASONE. [Concomitant]
     Active Substance: DEXAMETHASONE
     Indication: ABDOMINAL PAIN UPPER
     Dosage: 4 MG, UNK
     Route: 048
     Dates: start: 20131215, end: 20140106
  53. APREPITANT [Concomitant]
     Active Substance: APREPITANT
     Indication: PREMEDICATION
     Dosage: 125 MG, UNK
     Route: 048
     Dates: start: 20131212, end: 20131214
  54. APREPITANT [Concomitant]
     Active Substance: APREPITANT
     Dosage: 165 MG, UNK
     Route: 048
     Dates: start: 20140103, end: 20140103
  55. HEPARIN [Concomitant]
     Active Substance: HEPARIN SODIUM
     Indication: EMBOLISM VENOUS
     Dosage: 5000 IU, UNK
     Route: 058
     Dates: start: 20140224, end: 20140309
  56. KETAMINE [Concomitant]
     Active Substance: KETAMINE
     Indication: ABDOMINAL PAIN UPPER
     Dosage: 30 MG, UNK
     Route: 042
     Dates: start: 20140303, end: 20140303
  57. PROPOFOL. [Concomitant]
     Active Substance: PROPOFOL
     Indication: ABDOMINAL PAIN UPPER
     Dosage: 100 MG, UNK
     Route: 042
     Dates: start: 20140303, end: 20140303
  58. GLYCOPYRROLATE. [Concomitant]
     Active Substance: GLYCOPYRROLATE
     Indication: ABDOMINAL PAIN UPPER
     Dosage: 0.4 MG, UNK
     Route: 042
     Dates: start: 20140303, end: 20140303
  59. SEVOFLURANE. [Concomitant]
     Active Substance: SEVOFLURANE
     Indication: HEPATECTOMY
     Dosage: 1 %, UNK
     Route: 055
     Dates: start: 20140303, end: 20140303
  60. NIFEDINE [Concomitant]
     Indication: ANAL FISSURE
     Dosage: 1 DF, UNK
     Route: 054
     Dates: start: 20140120
  61. TARGIN [Concomitant]
     Active Substance: NALOXONE HYDROCHLORIDE\OXYCODONE HYDROCHLORIDE
     Indication: PAIN
     Dosage: 1 DF, UNK
     Route: 048
  62. TARGIN [Concomitant]
     Active Substance: NALOXONE HYDROCHLORIDE\OXYCODONE HYDROCHLORIDE
     Route: 048
     Dates: start: 20140319, end: 20140321
  63. PARACETAMOL [Concomitant]
     Active Substance: ACETAMINOPHEN
     Indication: ABDOMINAL DISCOMFORT
     Dosage: 1000 MG, UNK
     Route: 048
     Dates: start: 20140305, end: 20140308
  64. MORPHINE [Concomitant]
     Active Substance: MORPHINE
     Indication: ABDOMINAL PAIN UPPER
     Dosage: 150 UG, UNK
     Dates: start: 20140303, end: 20140303
  65. TRAMADOL [Concomitant]
     Active Substance: TRAMADOL
     Indication: ABDOMINAL PAIN UPPER
     Dosage: 100 MG, UNK
     Route: 042
     Dates: start: 20140303, end: 20140303
  66. ONDANSETRON [Concomitant]
     Active Substance: ONDANSETRON
     Dosage: 4 MG, UNK
     Route: 042
     Dates: start: 20140224, end: 20140228
  67. REMIFENTANIL [Concomitant]
     Active Substance: REMIFENTANIL
     Indication: ABDOMINAL PAIN UPPER
     Route: 042
     Dates: start: 20140303, end: 20140303
  68. COLOXYL SENNA [Concomitant]
     Indication: ABDOMINAL PAIN UPPER
     Dosage: 2 DF, UNK
     Route: 048
     Dates: start: 20140224, end: 20140306
  69. OXYCODONE [Concomitant]
     Active Substance: OXYCODONE
     Indication: HEPATECTOMY
     Dosage: 5 MG, UNK
     Route: 048
     Dates: start: 20140305, end: 20140305
  70. PHENERGAN [Concomitant]
     Active Substance: PROMETHAZINE HYDROCHLORIDE
     Indication: PRURITUS
     Dosage: 20 MG, UNK
     Route: 048
     Dates: start: 20131219
  71. NEXIUM [Concomitant]
     Active Substance: ESOMEPRAZOLE MAGNESIUM
     Indication: GASTROOESOPHAGEAL REFLUX DISEASE
     Dosage: 40 MG, UNK
     Route: 048
     Dates: start: 20140107, end: 20140109
  72. TARGIN [Concomitant]
     Active Substance: NALOXONE HYDROCHLORIDE\OXYCODONE HYDROCHLORIDE
     Indication: ABDOMINAL PAIN
     Dosage: 1 DF, UNK
     Route: 048
  73. MIDAZOLAM [Concomitant]
     Active Substance: MIDAZOLAM\MIDAZOLAM HYDROCHLORIDE
     Indication: ABDOMINAL PAIN UPPER
     Dosage: 2 MG, UNK
     Route: 042
     Dates: start: 20140303, end: 20140303
  74. KETAMINE [Concomitant]
     Active Substance: KETAMINE
     Dosage: 96 MG, UNK
     Route: 042
     Dates: start: 20140306, end: 20140307
  75. PANADOL [Concomitant]
     Active Substance: ACETAMINOPHEN
     Indication: ABDOMINAL PAIN UPPER
     Dosage: 1000 MG, UNK
     Route: 042
     Dates: start: 20140303, end: 20140303
  76. STEMETIL [Concomitant]
     Active Substance: PROCHLORPERAZINE MALEATE
     Indication: ABDOMINAL PAIN UPPER
     Dosage: 12.5 MG, UNK
     Route: 030
     Dates: start: 20140224, end: 20140224
  77. ENDONE [Concomitant]
     Active Substance: OXYCODONE HYDROCHLORIDE
     Dosage: 5 MG, UNK
     Route: 048
     Dates: start: 20140309, end: 20140309
  78. OXYCODONE [Concomitant]
     Active Substance: OXYCODONE
     Indication: ABDOMINAL PAIN UPPER
     Dosage: 25 MG, UNK
     Route: 048
     Dates: start: 20140224, end: 20140224
  79. PANTOPRAZOLE [Concomitant]
     Active Substance: PANTOPRAZOLE SODIUM
     Indication: GASTROOESOPHAGEAL REFLUX DISEASE
     Dosage: 40 MG, UNK
     Route: 048
     Dates: start: 20140320, end: 20140321
  80. BUSCOPAN [Concomitant]
     Active Substance: BUTYLSCOPOLAMINE BROMIDE
     Indication: ABDOMINAL PAIN UPPER
     Dosage: 40 MG, UNK
     Route: 048
     Dates: start: 20140301, end: 20140304
  81. GASTROGEL [Concomitant]
     Active Substance: ALUMINUM HYDROXIDE\MAGNESIUM HYDROXIDE\MAGNESIUM TRISILICATE
     Indication: HEPATECTOMY
     Dosage: 10 ML, UNK
     Route: 048
     Dates: start: 20140306, end: 20140306
  82. IBUPROFEN. [Concomitant]
     Active Substance: IBUPROFEN
     Indication: ABDOMINAL PAIN
     Dosage: 400 MG, UNK
     Route: 048
     Dates: start: 20140319, end: 20140321

REACTIONS (1)
  - Dermatitis acneiform [Not Recovered/Not Resolved]

NARRATIVE: CASE EVENT DATE: 20131219
